FAERS Safety Report 7246767 (Version 19)
Quarter: 2015Q4

REPORT INFORMATION
  Report Type: Report from Study
  Country: GB (occurrence: GB)
  Receive Date: 20100115
  Receipt Date: 20151216
  Transmission Date: 20160305
  Serious: Yes (Hospitalization, Other)
  Sender: FDA-Public Use
  Company Number: GB-B.I. PHARMACEUTICALS,INC./RIDGEFIELD-2008-UK-01857UK

PATIENT
  Age: 42 Year
  Sex: Female
  Weight: 74 kg

DRUGS (16)
  1. TRUVADA [Suspect]
     Active Substance: EMTRICITABINE\TENOFOVIR DISOPROXIL FUMARATE
     Indication: HIV INFECTION
     Route: 048
     Dates: start: 20070605, end: 20081023
  2. INTELENCE [Suspect]
     Active Substance: ETRAVIRINE
     Dosage: 1000 MG
     Route: 048
     Dates: start: 20081023
  3. ISENTRESS [Suspect]
     Active Substance: RALTEGRAVIR POTASSIUM
     Indication: HIV INFECTION
     Dosage: 800 MG
     Route: 048
     Dates: start: 20081023
  4. AZIDOTHYMIDINE [Concomitant]
     Active Substance: ZIDOVUDINE
     Indication: ANTIVIRAL PROPHYLAXIS
     Route: 042
  5. NORVIR [Suspect]
     Active Substance: RITONAVIR
     Indication: HIV INFECTION
     Dosage: 200 MG
     Route: 048
     Dates: start: 20060905, end: 20081022
  6. NOVORAPID [Concomitant]
     Active Substance: INSULIN ASPART
     Dosage: 400 MG
     Route: 065
  7. INTELENCE [Suspect]
     Active Substance: ETRAVIRINE
     Indication: HIV INFECTION
     Dosage: 1000 MG
     Route: 048
     Dates: end: 20081023
  8. PREDNISOLONE. [Concomitant]
     Active Substance: PREDNISOLONE
     Indication: PRODUCT USED FOR UNKNOWN INDICATION
     Route: 065
  9. NORVIR [Suspect]
     Active Substance: RITONAVIR
     Dosage: 200 MG
     Route: 048
     Dates: start: 20081023
  10. APTIVUS [Suspect]
     Active Substance: TIPRANAVIR
     Indication: HIV INFECTION
     Dosage: 1000 MG
     Route: 048
     Dates: start: 20060905, end: 20081023
  11. TRUVADA [Suspect]
     Active Substance: EMTRICITABINE\TENOFOVIR DISOPROXIL FUMARATE
     Route: 048
     Dates: start: 20060905
  12. INSULIN [Concomitant]
     Active Substance: INSULIN NOS
     Indication: GESTATIONAL DIABETES
     Route: 065
  13. INTELENCE [Suspect]
     Active Substance: ETRAVIRINE
     Dosage: 1000 MG
     Route: 048
  14. PREZISTA [Suspect]
     Active Substance: DARUNAVIR ETHANOLATE
     Indication: HIV INFECTION
     Dosage: 1200 MG
     Route: 048
     Dates: start: 20081023
  15. OXYGEN. [Concomitant]
     Active Substance: OXYGEN
     Indication: PRODUCT USED FOR UNKNOWN INDICATION
     Route: 055
  16. NOVORAPID [Concomitant]
     Active Substance: INSULIN ASPART
     Indication: GESTATIONAL DIABETES
     Dosage: 400 MG
     Route: 058
     Dates: end: 20091022

REACTIONS (9)
  - Aspartate aminotransferase abnormal [Recovered/Resolved]
  - Aspartate aminotransferase increased [Recovered/Resolved]
  - Premature labour [Recovered/Resolved]
  - Alanine aminotransferase increased [Recovered/Resolved]
  - Gestational diabetes [Unknown]
  - Drug-induced liver injury [Unknown]
  - Lipodystrophy acquired [Recovered/Resolved]
  - Alanine aminotransferase abnormal [Recovered/Resolved]
  - Maternal exposure during pregnancy [Unknown]

NARRATIVE: CASE EVENT DATE: 20081003
